FAERS Safety Report 9540759 (Version 2)
Quarter: 2013Q4

REPORT INFORMATION
  Report Type: Report from Study
  Country: ES (occurrence: ES)
  Receive Date: 20130920
  Receipt Date: 20131029
  Transmission Date: 20140711
  Serious: Yes (Other)
  Sender: FDA-Public Use
  Company Number: ES-VERTEX PHARMACEUTICALS INC-2013-009782

PATIENT
  Sex: 0

DRUGS (5)
  1. TELAPREVIR [Suspect]
     Indication: HEPATITIS C
  2. PEGINTERFERON ALFA [Suspect]
     Indication: CHRONIC HEPATITIS C
     Dosage: UNK
     Route: 065
  3. PEGINTERFERON ALFA [Suspect]
     Dosage: DOSAGE FORM: UNSPECIFIED
  4. RIBAVIRIN [Suspect]
     Indication: CHRONIC HEPATITIS C
     Dosage: UNK
     Route: 065
  5. RIBAVIRIN [Suspect]
     Dosage: DOSAGE FORM: UNSPECIFIED

REACTIONS (17)
  - Liver disorder [Unknown]
  - Hypertriglyceridaemia [Unknown]
  - Staphylococcal infection [Unknown]
  - Serum ferritin increased [Unknown]
  - Ear infection [Unknown]
  - Urinary tract infection [Unknown]
  - Cellulitis [Unknown]
  - Herpes zoster [Unknown]
  - Candida infection [Unknown]
  - Alanine aminotransferase decreased [Unknown]
  - Alanine aminotransferase increased [Unknown]
  - White blood cell count decreased [Unknown]
  - Renal failure [Unknown]
  - Toxic skin eruption [Unknown]
  - Anaemia [Unknown]
  - Blood uric acid increased [Unknown]
  - Platelet count decreased [Unknown]
